FAERS Safety Report 14018128 (Version 1)
Quarter: 2017Q3

REPORT INFORMATION
  Report Type: Spontaneous
  Country: US (occurrence: None)
  Receive Date: 20170927
  Receipt Date: 20170927
  Transmission Date: 20171128
  Serious: Yes (Hospitalization)
  Sender: FDA-Public Use
  Company Number: None

PATIENT
  Age: 6 Year
  Sex: Male

DRUGS (10)
  1. ZOFRA [Concomitant]
  2. DUOCAL [Concomitant]
  3. TABLOID [Suspect]
     Active Substance: THIOGUANINE
     Indication: MALIGNANT NEOPLASM OF SPINAL CORD
     Route: 048
     Dates: start: 20170209
  4. MIRALAX [Concomitant]
     Active Substance: POLYETHYLENE GLYCOL 3350
  5. GLEOSTINE [Suspect]
     Active Substance: LOMUSTINE
     Indication: MALIGNANT NEOPLASM OF SPINAL CORD
     Route: 048
     Dates: start: 20170209
  6. LEXAPRO [Concomitant]
     Active Substance: ESCITALOPRAM OXALATE
  7. ATIVAN [Concomitant]
     Active Substance: LORAZEPAM
  8. THIOGUANINE [Concomitant]
     Active Substance: THIOGUANINE
  9. SENNA [Concomitant]
     Active Substance: SENNA LEAF\SENNOSIDES\SENNOSIDES A AND B
  10. COLACE [Concomitant]
     Active Substance: DOCUSATE SODIUM

REACTIONS (1)
  - Transient ischaemic attack [None]

NARRATIVE: CASE EVENT DATE: 2017
